FAERS Safety Report 15195740 (Version 1)
Quarter: 2018Q3

REPORT INFORMATION
  Report Type: Spontaneous
  Country: SK (occurrence: SK)
  Receive Date: 20180725
  Receipt Date: 20180725
  Transmission Date: 20181010
  Serious: Yes (Other)
  Sender: FDA-Public Use
  Company Number: SK-PFIZER INC-2018294628

PATIENT
  Age: 65 Year
  Sex: Female

DRUGS (4)
  1. BISOMERCK [Concomitant]
     Indication: HYPERTENSIVE HEART DISEASE
     Dosage: 5 MG, 1X/DAY
     Dates: start: 2012
  2. ATORVASTATIN CALCIUM. [Suspect]
     Active Substance: ATORVASTATIN CALCIUM
     Indication: TYPE V HYPERLIPIDAEMIA
     Dosage: 20 MG, 1X/DAY
     Route: 048
     Dates: start: 20121004, end: 20160408
  3. LOSARTAN. [Concomitant]
     Active Substance: LOSARTAN
     Dosage: 10 MG, 1X/DAY
     Dates: start: 2012
  4. TENOX [Concomitant]
     Dosage: 5 MG, UNK
     Dates: start: 2012

REACTIONS (2)
  - Muscle rupture [Unknown]
  - Haematoma [Unknown]

NARRATIVE: CASE EVENT DATE: 20160408
